FAERS Safety Report 7962810-3 (Version None)
Quarter: 2011Q4

REPORT INFORMATION
  Report Type: 
  Country: None (occurrence: None)
  Receive Date: 20111207
  Receipt Date: 20111201
  Transmission Date: 20120403
  Serious: Yes (Death)
  Sender: FDA-Public Use
  Company Number: DE-ACTELION-A-US2011-57961

PATIENT

DRUGS (2)
  1. VENTAVIS [Suspect]
     Indication: PULMONARY ARTERIAL HYPERTENSION
     Dosage: 5.0 UG, QID
     Route: 055
     Dates: start: 20110923
  2. VENTAVIS [Suspect]
     Dosage: 5.0 UG, X1-3/DAY
     Route: 055

REACTIONS (2)
  - DEATH [None]
  - NAUSEA [None]
